FAERS Safety Report 8164108-X (Version None)
Quarter: 2012Q1

REPORT INFORMATION
  Report Type: 
  Country: None (occurrence: None)
  Receive Date: 20120224
  Receipt Date: 20120216
  Transmission Date: 20120608
  Serious: Yes (Hospitalization)
  Sender: FDA-Public Use
  Company Number: US-BAXTER-2012BH001657

PATIENT
  Age: 68 Year
  Sex: Male

DRUGS (2)
  1. EXTRANEAL [Suspect]
     Indication: PERITONEAL DIALYSIS
     Route: 033
     Dates: start: 20091001
  2. DIANEAL [Suspect]
     Indication: PERITONEAL DIALYSIS
     Route: 033
     Dates: start: 20091001

REACTIONS (10)
  - ASTHENIA [None]
  - URINARY INCONTINENCE [None]
  - BLOOD PHOSPHORUS DECREASED [None]
  - SEPSIS [None]
  - PYREXIA [None]
  - BLOOD POTASSIUM DECREASED [None]
  - BLOOD CREATININE INCREASED [None]
  - URINARY TRACT INFECTION [None]
  - ABASIA [None]
  - PROTEIN TOTAL DECREASED [None]
